FAERS Safety Report 17498346 (Version 1)
Quarter: 2020Q1

REPORT INFORMATION
  Report Type: Spontaneous
  Country: US (occurrence: US)
  Receive Date: 20200304
  Receipt Date: 20200304
  Transmission Date: 20200409
  Serious: No
  Sender: FDA-Public Use
  Company Number: US-TARO-2019TAR00853

PATIENT
  Age: 64 Year
  Sex: Female

DRUGS (1)
  1. NYSTATIN CREAM USP 100,000 UNITS/G [Suspect]
     Active Substance: NYSTATIN
     Route: 061

REACTIONS (5)
  - Sneezing [Recovered/Resolved]
  - Product quality issue [Recovered/Resolved]
  - Nasopharyngitis [Recovered/Resolved]
  - Application site pruritus [Recovered/Resolved]
  - Application site inflammation [Recovered/Resolved]
